FAERS Safety Report 8525602-2 (Version None)
Quarter: 2012Q3

REPORT INFORMATION
  Report Type: 
  Country: None (occurrence: None)
  Receive Date: 20120720
  Receipt Date: 20120717
  Transmission Date: 20120928
  Serious: Yes (Hospitalization)
  Sender: FDA-Public Use
  Company Number: CN-PFIZER INC-2012129982

PATIENT
  Age: 38 Hour
  Sex: Male
  Weight: 3.5 kg

DRUGS (2)
  1. HALOPERIDOL [Suspect]
     Indication: MENTAL DISORDER
     Dosage: 4 MG, 3X/DAY
     Route: 064
  2. CLOZAPINE [Suspect]
     Indication: MENTAL DISORDER
     Dosage: 50 MG, 3X/DAY
     Route: 064

REACTIONS (1)
  - DRUG WITHDRAWAL SYNDROME NEONATAL [None]
